FAERS Safety Report 23453112 (Version 4)
Quarter: 2024Q4

REPORT INFORMATION
  Report Type: Report from Study
  Country: ES (occurrence: ES)
  Receive Date: 20240129
  Receipt Date: 20241129
  Transmission Date: 20250114
  Serious: Yes (Hospitalization, Other)
  Sender: TAKEDA
  Company Number: ES-TAKEDA-2024TUS007722

PATIENT
  Age: 70 Year
  Sex: Male

DRUGS (15)
  1. TEDUGLUTIDE [Suspect]
     Active Substance: TEDUGLUTIDE
     Indication: Short-bowel syndrome
     Dosage: 2.5 MILLIGRAM, QD
     Dates: start: 20220517, end: 202206
  2. TEDUGLUTIDE [Suspect]
     Active Substance: TEDUGLUTIDE
     Dosage: 2.6 MILLIGRAM, QD
     Dates: start: 202206, end: 20220615
  3. TEDUGLUTIDE [Suspect]
     Active Substance: TEDUGLUTIDE
     Dosage: 2.7 MILLIGRAM, QD
     Dates: start: 20220615, end: 20220912
  4. TEDUGLUTIDE [Suspect]
     Active Substance: TEDUGLUTIDE
     Dosage: 2.8 MILLIGRAM, QD
     Dates: start: 20220912, end: 20230925
  5. TEDUGLUTIDE [Suspect]
     Active Substance: TEDUGLUTIDE
     Dosage: 2.2 MILLIGRAM, QD
     Dates: start: 20230925, end: 20240219
  6. TEDUGLUTIDE [Suspect]
     Active Substance: TEDUGLUTIDE
     Dosage: 2.3 MILLIGRAM, QD
     Dates: start: 20240219
  7. TOCOPHEROL [Concomitant]
     Active Substance: TOCOPHEROL
     Indication: Vitamin E deficiency
     Dosage: 200 INTERNATIONAL UNIT, QD
     Dates: start: 20240115
  8. CALCIFEDIOL [Concomitant]
     Active Substance: CALCIFEDIOL
     Indication: Vitamin D deficiency
     Dosage: 0.26 MILLIGRAM, 1/WEEK
     Dates: start: 20230828, end: 20240115
  9. CALCIFEDIOL [Concomitant]
     Active Substance: CALCIFEDIOL
     Dosage: 0.26 MILLIGRAM, 3/WEEK
     Dates: start: 20240115
  10. CALCIFEDIOL [Concomitant]
     Active Substance: CALCIFEDIOL
     Dosage: 266 MICROGRAM, 5/WEEK
     Dates: start: 20240520, end: 20240805
  11. CALCIFEDIOL [Concomitant]
     Active Substance: CALCIFEDIOL
     Dosage: 266 MICROGRAM, QD
     Dates: start: 20240805
  12. MUPIROCIN [Concomitant]
     Active Substance: MUPIROCIN
     Indication: Wound
     Dosage: 1 GRAM, QD
     Route: 061
     Dates: start: 20230626, end: 20230703
  13. ALPRAZOLAM [Concomitant]
     Active Substance: ALPRAZOLAM
     Indication: Anxiety
     Dosage: 0.50 MILLIGRAM
  14. PAROXETINE [Concomitant]
     Active Substance: PAROXETINE
     Indication: Depression
     Dosage: 30 MILLIGRAM, QD
     Dates: start: 20230925
  15. VANCOMYCIN [Concomitant]
     Active Substance: VANCOMYCIN
     Indication: Vascular device infection
     Dosage: UNK UNK, QD
     Dates: start: 20240620, end: 20240711

REACTIONS (4)
  - Diabetes mellitus [Not Recovered/Not Resolved]
  - Vascular device infection [Not Recovered/Not Resolved]
  - Pyrexia [Recovered/Resolved]
  - Pollakiuria [Not Recovered/Not Resolved]

NARRATIVE: CASE EVENT DATE: 20231021
